FAERS Safety Report 6986169-3 (Version None)
Quarter: 2010Q3

REPORT INFORMATION
  Report Type: 
  Country: None (occurrence: None)
  Receive Date: 20100915
  Receipt Date: 20090601
  Transmission Date: 20110219
  Serious: No
  Sender: FDA-Public Use
  Company Number: US-WYE-H09565909

PATIENT
  Sex: Female
  Weight: 48.58 kg

DRUGS (2)
  1. PRISTIQ [Suspect]
     Route: 048
     Dates: start: 20090529
  2. SULTOPRIDE [Concomitant]

REACTIONS (1)
  - HEADACHE [None]
